FAERS Safety Report 5817778-2 (Version None)
Quarter: 2008Q3

REPORT INFORMATION
  Report Type: 
  Country: None (occurrence: None)
  Receive Date: 20080716
  Receipt Date: 20080703
  Transmission Date: 20090109
  Serious: Yes (Other)
  Sender: FDA-Public Use
  Company Number: 2008S1011749

PATIENT
  Age: 47 Year
  Sex: Female

DRUGS (3)
  1. AZATHIOPRINE (AZATHTOPRINE) [Suspect]
     Indication: LUPUS PNEUMONITIS
     Dosage: 150 MG
     Dates: start: 19980101
  2. CICLOSPORIN (CICLOSPORIN) [Concomitant]
  3. PREDNISONE [Concomitant]

REACTIONS (1)
  - NON-HODGKIN'S LYMPHOMA [None]
